FAERS Safety Report 26011170 (Version 2)
Quarter: 2025Q4

REPORT INFORMATION
  Report Type: Spontaneous
  Country: EU (occurrence: EU)
  Receive Date: 20251107
  Receipt Date: 20251205
  Transmission Date: 20260117
  Serious: Yes (Other)
  Sender: TEVA
  Company Number: EU-TEVA-VS-3389526

PATIENT
  Age: 69 Year
  Sex: Male

DRUGS (22)
  1. BUPRENORPHINE [Suspect]
     Active Substance: BUPRENORPHINE
     Indication: Chest pain
     Dosage: TITRATED UP TO 52 ?G/H
     Route: 062
     Dates: start: 202501
  2. NIMESULIDE [Concomitant]
     Active Substance: NIMESULIDE
     Indication: Chest pain
  3. DICLOFENAC [Concomitant]
     Active Substance: DICLOFENAC
     Indication: Chest pain
  4. IBUPROFEN [Concomitant]
     Active Substance: IBUPROFEN
     Indication: Chest pain
  5. METAMIZOLE [Concomitant]
     Active Substance: METAMIZOLE
     Indication: Chest pain
  6. TRAMADOL [Concomitant]
     Active Substance: TRAMADOL
     Indication: Chest pain
  7. GABAPENTIN [Suspect]
     Active Substance: GABAPENTIN
     Indication: Chest pain
     Dosage: TITRATED UP TO 600 MG/DAY
     Route: 065
     Dates: start: 202504
  8. GABAPENTIN [Suspect]
     Active Substance: GABAPENTIN
     Indication: Chest pain
     Route: 065
  9. PREGABALIN [Suspect]
     Active Substance: PREGABALIN
     Indication: Chest pain
     Route: 065
     Dates: start: 202411
  10. TAPENTADOL [Suspect]
     Active Substance: TAPENTADOL
     Indication: Chest pain
     Route: 065
     Dates: start: 202412
  11. OXYCODONE [Suspect]
     Active Substance: OXYCODONE
     Indication: Chest pain
     Dosage: SUSTAINED-RELEASE
     Route: 065
  12. NALOXONE HYDROCHLORIDE\OXYCODONE HYDROCHLORIDE [Concomitant]
     Active Substance: NALOXONE HYDROCHLORIDE\OXYCODONE HYDROCHLORIDE
     Indication: Chest pain
     Dosage: GRADUALLY TITRATED TO A TOTAL DAILY DOSE OF 80/40 MG
     Route: 065
  13. NIVOLUMAB [Suspect]
     Active Substance: NIVOLUMAB
     Indication: Chest pain
     Route: 065
     Dates: start: 202409
  14. NIVOLUMAB [Suspect]
     Active Substance: NIVOLUMAB
     Indication: Chest pain
     Route: 065
     Dates: start: 202412
  15. FENTANYL [Concomitant]
     Active Substance: FENTANYL
     Indication: Chest pain
     Dosage: GRADUAL TITRATION UP TO 75 ?G/H
     Route: 062
     Dates: start: 202502
  16. FENTANYL [Concomitant]
     Active Substance: FENTANYL
     Indication: Chest pain
     Dosage: TITRATED UP TO 100 ?G/H
     Route: 062
     Dates: start: 202502
  17. FENTANYL [Concomitant]
     Active Substance: FENTANYL
     Indication: Chest pain
     Route: 060
  18. FENTANYL [Concomitant]
     Active Substance: FENTANYL
     Indication: Chest pain
     Route: 002
  19. TRAZODONE [Concomitant]
     Active Substance: TRAZODONE HYDROCHLORIDE
     Indication: Insomnia
     Route: 065
  20. ESCITALOPRAM [Concomitant]
     Active Substance: ESCITALOPRAM OXALATE
     Indication: Adjustment disorder with depressed mood
     Route: 065
  21. LIDOCAINE HYDROCHLORIDE [Concomitant]
     Active Substance: LIDOCAINE HYDROCHLORIDE
     Indication: Chest pain
     Dosage: APPLIED TO THE AFFECTED AREA FOR 12 HOURS PER DAY, TOPICAL, PATCH
     Route: 065
  22. UNSPECIFIED INGREDIENT [Suspect]
     Active Substance: UNSPECIFIED INGREDIENT
     Route: 065

REACTIONS (9)
  - Drug ineffective [Unknown]
  - Skin reaction [Unknown]
  - Vertigo [Unknown]
  - Constipation [Unknown]
  - Somnolence [Unknown]
  - Hallucination [Unknown]
  - Nausea [Unknown]
  - Dermatitis allergic [Unknown]
  - Autoimmune disorder [Unknown]
